FAERS Safety Report 9192392 (Version 1)
Quarter: 2013Q1

REPORT INFORMATION
  Report Type: Spontaneous
  Country: US (occurrence: None)
  Receive Date: 20130326
  Receipt Date: 20130326
  Transmission Date: 20140127
  Serious: Yes (Other)
  Sender: FDA-Public Use
  Company Number: None

PATIENT
  Age: 72 Year
  Sex: Female
  Weight: 61.24 kg

DRUGS (2)
  1. SULINDAC [Suspect]
     Indication: PAIN
     Route: 048
     Dates: start: 20120816, end: 20120831
  2. SULINDAC [Suspect]
     Indication: OSTEOARTHRITIS
     Route: 048
     Dates: start: 20120816, end: 20120831

REACTIONS (3)
  - Pain [None]
  - Dizziness [None]
  - Vision blurred [None]
